FAERS Safety Report 12384601 (Version 1)
Quarter: 2016Q2

REPORT INFORMATION
  Report Type: Spontaneous
  Country: US (occurrence: US)
  Receive Date: 20160519
  Receipt Date: 20160519
  Transmission Date: 20160815
  Serious: No
  Sender: FDA-Public Use
  Company Number: US-PFIZER INC-2016232225

PATIENT
  Sex: Female
  Weight: 113.83 kg

DRUGS (1)
  1. GABAPENTIN. [Suspect]
     Active Substance: GABAPENTIN
     Indication: HOT FLUSH
     Dosage: UNK

REACTIONS (2)
  - Neuropathy peripheral [Unknown]
  - Product use issue [Unknown]
